FAERS Safety Report 9679020 (Version 5)
Quarter: 2015Q1

REPORT INFORMATION
  Report Type: Spontaneous
  Country: US (occurrence: US)
  Receive Date: 20131108
  Receipt Date: 20150224
  Transmission Date: 20150721
  Serious: Yes (Hospitalization, Other)
  Sender: FDA-Public Use
  Company Number: US-PFIZER INC-2013319154

PATIENT
  Sex: Female

DRUGS (1)
  1. LYRICA [Suspect]
     Active Substance: PREGABALIN
     Dosage: 225 MG, 1X/DAY

REACTIONS (4)
  - Paraesthesia [Unknown]
  - Spinal disorder [Unknown]
  - Back pain [Unknown]
  - Renal failure [Unknown]

NARRATIVE: CASE EVENT DATE: 20150217
